FAERS Safety Report 6923801-4 (Version None)
Quarter: 2010Q3

REPORT INFORMATION
  Report Type: 
  Country: None (occurrence: None)
  Receive Date: 20100813
  Receipt Date: 20100803
  Transmission Date: 20110219
  Serious: Yes (Hospitalization)
  Sender: FDA-Public Use
  Company Number: GXKR2010GB08725

PATIENT
  Age: 41 Year
  Sex: Male

DRUGS (10)
  1. FUROSEMIDE (NGX) [Suspect]
     Indication: CONGESTIVE CARDIOMYOPATHY
     Dosage: 80 MG, BID
  2. INDOMETHACIN (NGX) [Suspect]
     Indication: GOUT
     Dosage: 25 MG, TID
  3. AMIODARONE [Concomitant]
     Indication: CONGESTIVE CARDIOMYOPATHY
     Dosage: 200 MG, QD
  4. AMIODARONE [Concomitant]
     Dosage: UNKNOWN
  5. BISOPROLOL [Concomitant]
     Indication: CONGESTIVE CARDIOMYOPATHY
     Dosage: 10 MG, QD
  6. BISOPROLOL [Concomitant]
     Dosage: UNKNOWN
  7. RAMIPRIL [Concomitant]
     Indication: CONGESTIVE CARDIOMYOPATHY
     Dosage: 10 MG, QD
  8. RAMIPRIL [Concomitant]
     Dosage: UNKNOWN
  9. SPIRONOLACTONE [Concomitant]
     Indication: FLUID RETENTION
  10. WARFARIN [Concomitant]
     Indication: CONGESTIVE CARDIOMYOPATHY

REACTIONS (4)
  - DEAFNESS [None]
  - FLUID RETENTION [None]
  - GOUT [None]
  - RENAL FAILURE CHRONIC [None]
